FAERS Safety Report 13157720 (Version 1)
Quarter: 2017Q1

REPORT INFORMATION
  Report Type: Spontaneous
  Country: US (occurrence: US)
  Receive Date: 20170127
  Receipt Date: 20170127
  Transmission Date: 20170428
  Serious: No
  Sender: FDA-Public Use
  Company Number: US-JNJFOC-20161209343

PATIENT
  Age: 31 Year
  Sex: Female

DRUGS (2)
  1. REMICADE [Suspect]
     Active Substance: INFLIXIMAB
     Indication: PSORIATIC ARTHROPATHY
     Route: 042
  2. REMICADE [Suspect]
     Active Substance: INFLIXIMAB
     Indication: PSORIATIC ARTHROPATHY
     Dosage: 2 ND DOSE
     Route: 042
     Dates: start: 201607

REACTIONS (5)
  - Chest discomfort [Unknown]
  - Ear discomfort [Unknown]
  - Flushing [Unknown]
  - Infusion related reaction [Unknown]
  - Feeling hot [Unknown]

NARRATIVE: CASE EVENT DATE: 201607
